FAERS Safety Report 22083175 (Version 1)
Quarter: 2023Q1

REPORT INFORMATION
  Report Type: Spontaneous
  Country: KR (occurrence: KR)
  Receive Date: 20230310
  Receipt Date: 20230310
  Transmission Date: 20230417
  Serious: Yes (Hospitalization, Congenital Anomaly, Other)
  Sender: FDA-Public Use
  Company Number: KR-Accord-303439

PATIENT
  Sex: Male

DRUGS (1)
  1. METHOTREXATE [Suspect]
     Active Substance: METHOTREXATE
     Route: 064

REACTIONS (9)
  - Foetal methotrexate syndrome [Unknown]
  - Limb reduction defect [Unknown]
  - Adactyly [Unknown]
  - Syndactyly [Unknown]
  - Atrial septal defect [Unknown]
  - Talipes [Unknown]
  - Patent ductus arteriosus [Unknown]
  - Polydactyly [Unknown]
  - Single umbilical artery [Unknown]
